FAERS Safety Report 20688032 (Version 2)
Quarter: 2022Q2

REPORT INFORMATION
  Report Type: Spontaneous
  Country: FR (occurrence: FR)
  Receive Date: 20220408
  Receipt Date: 20220412
  Transmission Date: 20220721
  Serious: No
  Sender: FDA-Public Use
  Company Number: FR-AUROBINDO-AUR-APL-2022-009972

PATIENT
  Age: 50 Year
  Sex: Female
  Weight: 66 kg

DRUGS (5)
  1. METFORMIN [Suspect]
     Active Substance: METFORMIN HYDROCHLORIDE
     Indication: Diabetes mellitus
     Dosage: UNK
     Route: 065
  2. METFORMIN [Suspect]
     Active Substance: METFORMIN HYDROCHLORIDE
     Indication: Diabetic ketoacidosis
  3. DULAGLUTIDE [Concomitant]
     Active Substance: DULAGLUTIDE
     Indication: Diabetes mellitus
     Dosage: 0.75 MILLIGRAM, EVERY WEEK
     Route: 065
  4. INSULIN NOS [Concomitant]
     Active Substance: INSULIN NOS
     Indication: Diabetes mellitus
     Dosage: 1.2 INTERNATIONAL UNIT/KILOGRAM, DAILY
     Route: 058
  5. INSULIN NOS [Concomitant]
     Active Substance: INSULIN NOS
     Indication: Diabetic ketoacidosis
     Dosage: 0.9 INTERNATIONAL UNIT/KILOGRAM
     Route: 065

REACTIONS (2)
  - Gastrointestinal disorder [Unknown]
  - Drug intolerance [Unknown]
